FAERS Safety Report 6337574-X (Version None)
Quarter: 2009Q3

REPORT INFORMATION
  Report Type: 
  Country: None (occurrence: None)
  Receive Date: 20090902
  Receipt Date: 20090821
  Transmission Date: 20100115
  Serious: No
  Sender: FDA-Public Use
  Company Number: CH-ELI_LILLY_AND_COMPANY-CH200908005160

PATIENT
  Sex: Female

DRUGS (4)
  1. CYMBALTA [Suspect]
     Dosage: 30 MG, UNKNOWN
     Route: 065
     Dates: start: 20080916
  2. APROVEL [Concomitant]
     Dosage: UNK, UNKNOWN
     Route: 065
  3. EUTHYROX [Concomitant]
     Dosage: UNK, UNKNOWN
     Route: 065
  4. VITAMIN D [Concomitant]
     Dosage: UNK, UNKNOWN
     Route: 065

REACTIONS (1)
  - HEPATIC ENZYME INCREASED [None]
